FAERS Safety Report 14535777 (Version 2)
Quarter: 2018Q2

REPORT INFORMATION
  Report Type: Report from Study
  Country: US (occurrence: US)
  Receive Date: 20180215
  Receipt Date: 20180430
  Transmission Date: 20180711
  Serious: Yes (Other)
  Sender: FDA-Public Use
  Company Number: US-BAYER-2017-186129

PATIENT
  Age: 60 Year
  Sex: Female
  Weight: 99.32 kg

DRUGS (19)
  1. NEXAVAR [Suspect]
     Active Substance: SORAFENIB
     Indication: HEPATOCELLULAR CARCINOMA
     Dosage: UNK UNK, TID
     Route: 048
  2. VITAMIN D3 [Concomitant]
     Active Substance: CHOLECALCIFEROL
  3. MILK THISTLE [Concomitant]
     Active Substance: DIETARY SUPPLEMENT\HERBALS\MILK THISTLE
  4. NEXAVAR [Suspect]
     Active Substance: SORAFENIB
     Indication: HEPATOCELLULAR CARCINOMA
     Dosage: 200 MG, TID
     Route: 048
     Dates: start: 20170922, end: 201712
  5. NEXAVAR [Suspect]
     Active Substance: SORAFENIB
     Indication: HEPATOCELLULAR CARCINOMA
     Dosage: 200 MG, TID
     Route: 048
  6. FOLIC ACID. [Concomitant]
     Active Substance: FOLIC ACID
  7. MULTIVITAMINS [Concomitant]
     Active Substance: VITAMINS
  8. TYLENOL [Concomitant]
     Active Substance: ACETAMINOPHEN
  9. RAMIPRIL. [Concomitant]
     Active Substance: RAMIPRIL
  10. ALTACE [Concomitant]
     Active Substance: RAMIPRIL
  11. PHYTONADIONE. [Concomitant]
     Active Substance: PHYTONADIONE
  12. ADVIL [Concomitant]
     Active Substance: IBUPROFEN
  13. METFORMIN [Concomitant]
     Active Substance: METFORMIN HYDROCHLORIDE
  14. VITAMIN D [Concomitant]
     Active Substance: CHOLECALCIFEROL
  15. METFORMIN HCL [Concomitant]
     Active Substance: METFORMIN HYDROCHLORIDE
  16. NEXAVAR [Suspect]
     Active Substance: SORAFENIB
     Indication: HEPATOCELLULAR CARCINOMA
     Dosage: 200 MG, TID
     Route: 048
  17. PRILOSEC [Concomitant]
     Active Substance: OMEPRAZOLE MAGNESIUM
  18. VITAMIN K [Concomitant]
     Active Substance: PHYTONADIONE
  19. LYRICA [Concomitant]
     Active Substance: PREGABALIN

REACTIONS (22)
  - Dysgeusia [Unknown]
  - Abdominal pain upper [Unknown]
  - Diarrhoea [Unknown]
  - Blood pressure diastolic increased [Unknown]
  - Cough [Unknown]
  - Rash macular [Unknown]
  - Alopecia [Not Recovered/Not Resolved]
  - Headache [Unknown]
  - Off label use [None]
  - Neuropathy peripheral [Unknown]
  - Constipation [Unknown]
  - Nipple disorder [Unknown]
  - Pyrexia [Unknown]
  - Nasopharyngitis [Unknown]
  - Skin exfoliation [Unknown]
  - Sinus operation [Unknown]
  - Palmar-plantar erythrodysaesthesia syndrome [Unknown]
  - Liver transplant [None]
  - Hernia [Unknown]
  - Pain in extremity [Unknown]
  - Blood pressure increased [Unknown]
  - Oropharyngeal pain [Unknown]

NARRATIVE: CASE EVENT DATE: 20171003
